FAERS Safety Report 8904371 (Version 2)
Quarter: 2013Q1

REPORT INFORMATION
  Report Type: Spontaneous
  Country: US (occurrence: US)
  Receive Date: 20121113
  Receipt Date: 20130321
  Transmission Date: 20140127
  Serious: No
  Sender: FDA-Public Use
  Company Number: US-VERTEX PHARMACEUTICAL INC.-2012-024077

PATIENT
  Age: 49 None
  Sex: Female
  Weight: 60 kg

DRUGS (6)
  1. INCIVEK [Suspect]
     Indication: HEPATITIS C
     Dosage: 750 MG, TID
     Route: 048
     Dates: start: 20120224, end: 20120225
  2. RIBAVIRIN [Suspect]
     Dosage: 1200 MG, QD
     Route: 048
     Dates: start: 20120224, end: 20120225
  3. PEGASYS [Suspect]
     Dosage: 180 ?G, QW
     Route: 058
     Dates: start: 20120224, end: 20120225
  4. PROZAC [Concomitant]
     Indication: DEPRESSION
     Dosage: 20 MG, QD
     Route: 048
     Dates: start: 201011, end: 201204
  5. ALPRAZOLAM [Concomitant]
     Indication: ANXIETY
  6. ATIVAN [Concomitant]
     Route: 048

REACTIONS (16)
  - Dehydration [Recovered/Resolved]
  - Chills [Recovered/Resolved]
  - Decreased appetite [Unknown]
  - Disturbance in attention [Unknown]
  - Depressed mood [Unknown]
  - Poor quality sleep [Unknown]
  - Lethargy [Unknown]
  - Decreased interest [Unknown]
  - Hypersomnia [Unknown]
  - Restlessness [Unknown]
  - Initial insomnia [Unknown]
  - Headache [Unknown]
  - Pain [Unknown]
  - Fatigue [Unknown]
  - Nausea [Unknown]
  - Vomiting [Recovered/Resolved]
